FAERS Safety Report 6824177-3 (Version None)
Quarter: 2010Q3

REPORT INFORMATION
  Report Type: 
  Country: None (occurrence: None)
  Receive Date: 20100708
  Receipt Date: 20061012
  Transmission Date: 20110219
  Serious: No
  Sender: FDA-Public Use
  Company Number: US-PFIZER INC-2006127284

PATIENT
  Age: 61 Year
  Sex: Female
  Weight: 72.57 kg

DRUGS (3)
  1. CHANTIX [Suspect]
     Indication: SMOKING CESSATION THERAPY
     Route: 048
     Dates: start: 20061009
  2. SYNTHROID [Concomitant]
     Route: 048
  3. PROTONIX [Concomitant]
     Route: 048

REACTIONS (3)
  - PRURITUS [None]
  - RASH [None]
  - RESTLESSNESS [None]
